FAERS Safety Report 12273658 (Version 1)
Quarter: 2016Q2

REPORT INFORMATION
  Report Type: Spontaneous
  Country: US (occurrence: US)
  Receive Date: 20160415
  Receipt Date: 20160415
  Transmission Date: 20160815
  Serious: No
  Sender: FDA-Public Use
  Company Number: US-KVK-TECH, INC-1050617

PATIENT
  Age: 36 Year
  Sex: Male

DRUGS (4)
  1. SYNTHROID [Concomitant]
     Active Substance: LEVOTHYROXINE SODIUM
  2. TEMAZEPAM. [Concomitant]
     Active Substance: TEMAZEPAM
     Route: 048
  3. DEXTROAMPHETAMINE SULFATE. [Suspect]
     Active Substance: DEXTROAMPHETAMINE SULFATE
     Indication: ATTENTION DEFICIT/HYPERACTIVITY DISORDER
     Route: 048
     Dates: start: 20160328
  4. SUBUTEX [Concomitant]
     Active Substance: BUPRENORPHINE HYDROCHLORIDE

REACTIONS (6)
  - Blood pressure increased [Unknown]
  - Agitation [Unknown]
  - Heart rate increased [Unknown]
  - Anxiety [Unknown]
  - Dyspnoea [Unknown]
  - Restlessness [Unknown]
